FAERS Safety Report 21361992 (Version 1)
Quarter: 2022Q3

REPORT INFORMATION
  Report Type: Other
  Country: RU (occurrence: RU)
  Receive Date: 20220922
  Receipt Date: 20220922
  Transmission Date: 20221027
  Serious: Yes (Other)
  Sender: FDA-Public Use
  Company Number: RU-MACLEODS PHARMACEUTICALS US LTD-MAC2022037225

PATIENT

DRUGS (3)
  1. TENOFOVIR DISOPROXIL [Suspect]
     Active Substance: TENOFOVIR DISOPROXIL
     Indication: HIV infection
     Dosage: 300 MILLIGRAM, QD (1 COURSE, PRIOR TO CONCEPTION, EXPOSURE DURING FIRST TRIMESTER)
     Route: 048
     Dates: start: 20200901
  2. LAMIVUDINE [Suspect]
     Active Substance: LAMIVUDINE
     Indication: HIV infection
     Dosage: 300 MILLIGRAM, QD (1 COURSE, PRIOR TO CONCEPTION, EXPOSURE DURING FIRST TRIMESTER)
     Route: 048
     Dates: start: 20200901
  3. TIVICAY [Suspect]
     Active Substance: DOLUTEGRAVIR SODIUM
     Indication: HIV infection
     Dosage: 50 MILLIGRAM, QD (1 COURSE, PRIOR TO CONCEPTION, EXPOSURE DURING FIRST TRIMESTER)
     Route: 048
     Dates: start: 20200901

REACTIONS (2)
  - Abortion induced [Unknown]
  - Maternal exposure during pregnancy [Unknown]

NARRATIVE: CASE EVENT DATE: 20220120
